FAERS Safety Report 7285587-6 (Version None)
Quarter: 2011Q1

REPORT INFORMATION
  Report Type: 
  Country: None (occurrence: None)
  Receive Date: 20110210
  Receipt Date: 20110207
  Transmission Date: 20110831
  Serious: Yes (Hospitalization)
  Sender: FDA-Public Use
  Company Number: A0779054A

PATIENT
  Age: 66 Year
  Sex: Male
  Weight: 100 kg

DRUGS (5)
  1. TRICOR [Concomitant]
  2. AVANDIA [Suspect]
     Indication: DIABETES MELLITUS
     Dosage: 4MG PER DAY
     Route: 048
     Dates: start: 20040611, end: 20051020
  3. GLUCOPHAGE [Concomitant]
  4. GLUCOTROL [Concomitant]
  5. HYZAAR [Concomitant]

REACTIONS (1)
  - MYOCARDIAL INFARCTION [None]
